FAERS Safety Report 25612977 (Version 2)
Quarter: 2025Q3

REPORT INFORMATION
  Report Type: Spontaneous
  Country: US (occurrence: US)
  Receive Date: 20250728
  Receipt Date: 20250915
  Transmission Date: 20251021
  Serious: No
  Sender: RARE DISEASE THERAPEUTICS, INC.
  Company Number: US-Rare Disease Therapeutics, Inc.-2181361

PATIENT
  Sex: Female

DRUGS (1)
  1. ANAVIP [Suspect]
     Active Substance: PIT VIPER (CROTALINAE) IMMUNE GLOBULIN ANTIVENIN (EQUINE)
     Indication: Snake bite

REACTIONS (7)
  - Oedema peripheral [Unknown]
  - Rash [Unknown]
  - Migraine [Unknown]
  - Pruritus [Unknown]
  - Insomnia [Unknown]
  - Fatigue [Unknown]
  - Renal pain [Unknown]
